FAERS Safety Report 8524042-X (Version None)
Quarter: 2012Q3

REPORT INFORMATION
  Report Type: 
  Country: None (occurrence: None)
  Receive Date: 20120720
  Receipt Date: 20120706
  Transmission Date: 20120928
  Serious: Yes (Hospitalization)
  Sender: FDA-Public Use
  Company Number: JP-FRI-1000037074

PATIENT
  Sex: Male

DRUGS (7)
  1. MEMANTINE HCL [Suspect]
     Dosage: 15 MG
     Route: 048
     Dates: start: 20120316, end: 20120407
  2. SEROQUEL [Concomitant]
     Indication: DEMENTIA ALZHEIMER'S TYPE
     Dosage: 25 MG
     Route: 048
     Dates: start: 20110510
  3. MEMANTINE HCL [Suspect]
     Dosage: 10 MG
     Route: 048
     Dates: start: 20120221, end: 20120315
  4. SERMION [Concomitant]
     Indication: DEMENTIA ALZHEIMER'S TYPE
     Dosage: 15 MG
     Route: 048
     Dates: start: 20110510
  5. ZOLOFT [Concomitant]
     Indication: DEMENTIA ALZHEIMER'S TYPE
     Dosage: 25 MG
     Route: 048
     Dates: start: 20110510
  6. MEMANTINE HCL [Suspect]
     Indication: DEMENTIA ALZHEIMER'S TYPE
     Dosage: 5 MG
     Route: 048
     Dates: start: 20120124, end: 20120220
  7. GRAMALIL [Concomitant]
     Indication: DEMENTIA ALZHEIMER'S TYPE
     Dosage: 25 MG
     Route: 048
     Dates: start: 20110510

REACTIONS (1)
  - PANCREATITIS ACUTE [None]
